FAERS Safety Report 6206327-5 (Version None)
Quarter: 2009Q2

REPORT INFORMATION
  Report Type: 
  Country: None (occurrence: None)
  Receive Date: 20090528
  Receipt Date: 20090519
  Transmission Date: 20091009
  Serious: Yes (Other)
  Sender: FDA-Public Use
  Company Number: PHHY2009MX19654

PATIENT
  Sex: Female

DRUGS (2)
  1. TEGRETOL [Suspect]
     Dosage: 200 MG
     Dates: start: 20040101
  2. ATEMPERATOR [Concomitant]
     Dosage: UNK
     Dates: start: 20070801

REACTIONS (3)
  - EPILEPSY [None]
  - MENINGIOMA SURGERY [None]
  - PETIT MAL EPILEPSY [None]
